FAERS Safety Report 6355975-0 (Version None)
Quarter: 2009Q3

REPORT INFORMATION
  Report Type: 
  Country: None (occurrence: None)
  Receive Date: 20090915
  Receipt Date: 20090903
  Transmission Date: 20100115
  Serious: No
  Sender: FDA-Public Use
  Company Number: CA-JNJFOC-20090809373

PATIENT
  Age: 53 Year
  Sex: Male
  Weight: 109.3 kg

DRUGS (3)
  1. REMICADE [Suspect]
     Route: 042
  2. REMICADE [Suspect]
     Dosage: 3 DOSES
     Route: 042
  3. REMICADE [Suspect]
     Indication: PSORIASIS
     Dosage: RECEIVED DOSES OVER A SIX WEEK PERIOD/3 DOSES GIVEN AT TIME OF INFUSION
     Route: 042

REACTIONS (6)
  - ANXIETY [None]
  - CHEST DISCOMFORT [None]
  - DYSPNOEA [None]
  - FLUSHING [None]
  - INFUSION RELATED REACTION [None]
  - NAUSEA [None]
